FAERS Safety Report 20701681 (Version 1)
Quarter: 2022Q2

REPORT INFORMATION
  Report Type: Spontaneous
  Country: US (occurrence: None)
  Receive Date: 20220411
  Receipt Date: 20220411
  Transmission Date: 20220721
  Serious: Yes (Other)
  Sender: FDA-Public Use
  Company Number: None

PATIENT
  Age: 74 Year
  Sex: Female
  Weight: 47.25 kg

DRUGS (10)
  1. DORZOLAMIDE HYDROCHLORIDE\TIMOLOL MALEATE [Suspect]
     Active Substance: DORZOLAMIDE HYDROCHLORIDE\TIMOLOL MALEATE
     Indication: Glaucoma
     Dosage: OTHER QUANTITY : 1 DROP(S);?
     Route: 047
     Dates: start: 20220302, end: 20220309
  2. LEVOTHYROXINE [Concomitant]
  3. latanoprost OP [Concomitant]
  4. CALCIUM [Concomitant]
     Active Substance: CALCIUM
  5. MAGNESIUM [Concomitant]
  6. IRON [Concomitant]
  7. VITAMIN D NOS [Concomitant]
     Active Substance: VITAMIN D NOS
  8. ZINC [Concomitant]
     Active Substance: ZINC
  9. ROGAINE [Concomitant]
     Active Substance: MINOXIDIL
  10. PROBIOTIC [Concomitant]

REACTIONS (2)
  - Instillation site pain [None]
  - Headache [None]

NARRATIVE: CASE EVENT DATE: 20220302
